FAERS Safety Report 24883320 (Version 1)
Quarter: 2025Q1

REPORT INFORMATION
  Report Type: Spontaneous
  Country: AU (occurrence: AU)
  Receive Date: 20250124
  Receipt Date: 20250124
  Transmission Date: 20250409
  Serious: Yes (Other)
  Sender: RANBAXY
  Company Number: AU-SUN PHARMACEUTICAL INDUSTRIES LTD-2025R1-490097

PATIENT

DRUGS (4)
  1. DOXORUBICIN [Suspect]
     Active Substance: DOXORUBICIN
     Indication: Plasma cell myeloma refractory
     Route: 042
  2. PREDNISOLONE [Suspect]
     Active Substance: PREDNISOLONE
     Indication: Plasma cell myeloma refractory
     Route: 048
  3. CARMUSTINE [Suspect]
     Active Substance: CARMUSTINE
     Indication: Plasma cell myeloma refractory
     Route: 042
  4. CYCLOPHOSPHAMIDE [Suspect]
     Active Substance: CYCLOPHOSPHAMIDE
     Indication: Plasma cell myeloma refractory
     Route: 042

REACTIONS (2)
  - Neuropathy peripheral [Unknown]
  - Off label use [Unknown]
